FAERS Safety Report 19505996 (Version 1)
Quarter: 2021Q3

REPORT INFORMATION
  Report Type: Spontaneous
  Country: US (occurrence: US)
  Receive Date: 20210708
  Receipt Date: 20210708
  Transmission Date: 20211014
  Serious: Yes (Life-Threatening, Hospitalization)
  Sender: FDA-Public Use
  Company Number: None

PATIENT
  Age: 55 Year
  Sex: Female

DRUGS (1)
  1. MOXIFLOXACIN OPHTHALMIC SOLUTION [Suspect]
     Active Substance: MOXIFLOXACIN
     Indication: CORNEAL ABRASION
     Route: 061
     Dates: start: 20210616, end: 20210616

REACTIONS (1)
  - Anaphylactic reaction [None]

NARRATIVE: CASE EVENT DATE: 20210616
